FAERS Safety Report 24789260 (Version 1)
Quarter: 2024Q4

REPORT INFORMATION
  Report Type: Spontaneous
  Country: NG (occurrence: NG)
  Receive Date: 20241230
  Receipt Date: 20241230
  Transmission Date: 20250114
  Serious: Yes (Life-Threatening, Hospitalization, Other)
  Sender: PFIZER
  Company Number: NG-PFIZER INC-202400329802

PATIENT
  Age: 35 Year
  Sex: Female

DRUGS (2)
  1. MISOPROSTOL [Suspect]
     Active Substance: MISOPROSTOL
     Indication: Induced labour
     Dosage: 200 UG
     Route: 060
  2. OXYTOCIN [Concomitant]
     Active Substance: OXYTOCIN
     Indication: Induced labour
     Dosage: UNK
     Route: 042

REACTIONS (3)
  - Uterine rupture [Recovered/Resolved]
  - Intentional product misuse [Unknown]
  - Foetal death [Unknown]
